FAERS Safety Report 13104886 (Version 3)
Quarter: 2017Q1

REPORT INFORMATION
  Report Type: Spontaneous
  Country: NL (occurrence: NL)
  Receive Date: 20170111
  Receipt Date: 20170203
  Transmission Date: 20170428
  Serious: Yes (Life-Threatening, Hospitalization, Other)
  Sender: FDA-Public Use
  Company Number: NL-PFIZER INC-2017006711

PATIENT
  Age: 59 Year
  Sex: Female
  Weight: 70 kg

DRUGS (2)
  1. METFORMINE [Concomitant]
     Active Substance: METFORMIN HYDROCHLORIDE
     Dosage: 500 MG, 2X/DAY
  2. ADVIL [Suspect]
     Active Substance: IBUPROFEN
     Indication: PAIN
     Dosage: 400 MG, TWICE IN 3 DAYS
     Route: 048
     Dates: start: 20151216, end: 20151219

REACTIONS (10)
  - Thrombocytopenic purpura [Recovered/Resolved]
  - Angina bullosa haemorrhagica [Unknown]
  - Malaise [Unknown]
  - Tremor [Unknown]
  - Nasopharyngitis [Unknown]
  - Haematoma [Unknown]
  - Blood glucose fluctuation [Recovered/Resolved]
  - Increased tendency to bruise [Unknown]
  - Back pain [Unknown]
  - Gingival bleeding [Unknown]

NARRATIVE: CASE EVENT DATE: 20151218
